FAERS Safety Report 8232322-0 (Version None)
Quarter: 2012Q1

REPORT INFORMATION
  Report Type: 
  Country: None (occurrence: None)
  Receive Date: 20120323
  Receipt Date: 20120320
  Transmission Date: 20120608
  Serious: Yes (Death, Hospitalization)
  Sender: FDA-Public Use
  Company Number: US-GLAXOSMITHKLINE-A0783860A

PATIENT
  Age: 41 Year
  Sex: Male

DRUGS (11)
  1. AZMACORT [Concomitant]
  2. THEO-DUR [Concomitant]
  3. FLOVENT [Concomitant]
  4. SEREVENT [Suspect]
     Indication: PRODUCT USED FOR UNKNOWN INDICATION
     Dosage: 2PUFF TWICE PER DAY
     Route: 055
     Dates: start: 20010301, end: 20030101
  5. SEREVENT [Suspect]
     Indication: ASTHMA
     Dosage: 1PUFF TWICE PER DAY
     Route: 055
  6. VENTOLIN [Concomitant]
     Route: 055
  7. PREDNISONE TAB [Concomitant]
  8. PRIMATENE MIST [Concomitant]
  9. VANCERIL [Concomitant]
  10. ANTIBIOTIC [Concomitant]
  11. SINGULAIR [Concomitant]

REACTIONS (6)
  - RHINITIS [None]
  - ASTHMA [None]
  - ARTERIOSCLEROSIS [None]
  - BRONCHITIS [None]
  - HYPERTENSION [None]
  - BRONCHOSPASM [None]
